FAERS Safety Report 20733449 (Version 4)
Quarter: 2022Q3

REPORT INFORMATION
  Report Type: Spontaneous
  Country: HT (occurrence: HT)
  Receive Date: 20220421
  Receipt Date: 20220702
  Transmission Date: 20221026
  Serious: Yes (Death, Hospitalization)
  Sender: FDA-Public Use
  Company Number: HT-NOVARTISPH-NVSC2022HT092161

PATIENT
  Age: 40 Year
  Sex: Male

DRUGS (1)
  1. GLIVEC [Suspect]
     Active Substance: IMATINIB MESYLATE
     Indication: Chronic myeloid leukaemia
     Dosage: 400 MG, QD
     Route: 065
     Dates: start: 20200909

REACTIONS (3)
  - Malaria [Fatal]
  - Pyrexia [Fatal]
  - Hyperhidrosis [Fatal]

NARRATIVE: CASE EVENT DATE: 20210901
